FAERS Safety Report 6137047-3 (Version None)
Quarter: 2009Q1

REPORT INFORMATION
  Report Type: 
  Country: None (occurrence: None)
  Receive Date: 20090326
  Receipt Date: 20090321
  Transmission Date: 20090719
  Serious: Yes (Death)
  Sender: FDA-Public Use
  Company Number: 218832

PATIENT
  Age: 25 Year
  Sex: Male

DRUGS (3)
  1. PROPOFOL [Suspect]
     Indication: INTRACRANIAL PRESSURE INCREASED
     Dosage: 30-134 MCG/KG/MIN
  2. PHENYLEPHRINE HCL INJ USP 1% (PHENYLEPHRINE) [Suspect]
     Indication: VASOPRESSIVE THERAPY
     Dosage: 0.04-7.6 MCG/KG/MIN
  3. THIOPENTAL SODIUM [Concomitant]

REACTIONS (2)
  - DRUG INTERACTION [None]
  - PROPOFOL INFUSION SYNDROME [None]
